FAERS Safety Report 10406641 (Version 1)
Quarter: 2014Q3

REPORT INFORMATION
  Report Type: Spontaneous
  Country: GB (occurrence: None)
  Receive Date: 20140821
  Receipt Date: 20140821
  Transmission Date: 20150326
  Serious: No
  Sender: FDA-Public Use
  Company Number: GB2014K3127SPO

PATIENT
  Age: 49 Year
  Sex: Female
  Weight: 93.43 kg

DRUGS (9)
  1. LANSOPRAZOLE WORLD (LANSOPRAZOLE) [Suspect]
     Active Substance: LANSOPRAZOLE
     Indication: PRODUCT USED FOR UNKNOWN INDICATION
     Route: 048
     Dates: start: 20140224, end: 20140719
  2. FLUTICASONE [Concomitant]
     Active Substance: FLUTICASONE\FLUTICASONE PROPIONATE
  3. FLUTICASONE PROPIONATE (FLUTICASONE) [Concomitant]
  4. NORMACOL PLUS (FRANGULA B ARK, RHAMNUS FRANGULA, STERCULIA) [Concomitant]
  5. OESTROGENS NATURALLY CONJUGATED (ESTROGEN, ESTROGENS) [Concomitant]
  6. HYDROCHLOROQUINE (HYDROXYCHLOROQUINE) [Concomitant]
  7. ISOTRETINOIN (ISOTRETINOIN) [Concomitant]
     Active Substance: ISOTRETINOIN
  8. SALBUTAMOL (SALBUTAMOL) [Concomitant]
     Active Substance: ALBUTEROL
  9. DESOGESTREL (DESOGESTREL) [Concomitant]

REACTIONS (7)
  - No therapeutic response [None]
  - Condition aggravated [None]
  - Pruritus [None]
  - Subacute cutaneous lupus erythematosus [None]
  - Erythema [None]
  - Photosensitivity reaction [None]
  - Skin lesion [None]

NARRATIVE: CASE EVENT DATE: 20140317
